FAERS Safety Report 5727339-1 (Version None)
Quarter: 2008Q2

REPORT INFORMATION
  Report Type: 
  Country: None (occurrence: None)
  Receive Date: 20080430
  Receipt Date: 20080421
  Transmission Date: 20081010
  Serious: Yes (Other)
  Sender: FDA-Public Use
  Company Number: 2008AP001038

PATIENT
  Age: 68 Year
  Sex: Female

DRUGS (3)
  1. TERBINAFINE HCL [Suspect]
     Indication: TRICHOPHYTIC GRANULOMA
     Dosage: 250 MG; QD;
  2. MICONAZOLE NITRATE [Concomitant]
  3. HYDROCORTISONE [Concomitant]

REACTIONS (3)
  - CUTANEOUS LUPUS ERYTHEMATOSUS [None]
  - PERIVASCULAR DERMATITIS [None]
  - POLYMORPHIC LIGHT ERUPTION [None]
